FAERS Safety Report 5317613-5 (Version None)
Quarter: 2007Q2

REPORT INFORMATION
  Report Type: 
  Country: None (occurrence: None)
  Receive Date: 20070507
  Receipt Date: 20070426
  Transmission Date: 20071010
  Serious: Yes (Hospitalization, Other)
  Sender: FDA-Public Use
  Company Number: PHEH2007US04931

PATIENT
  Age: 74 Year

DRUGS (1)
  1. ZELNORM [Suspect]
     Indication: IRRITABLE BOWEL SYNDROME
     Dosage: 6 MG, BID
     Dates: start: 20061201, end: 20061201

REACTIONS (4)
  - CATHETERISATION CARDIAC [None]
  - DIARRHOEA [None]
  - HEART RATE INCREASED [None]
  - INFECTION [None]
